FAERS Safety Report 7302963-3 (Version None)
Quarter: 2011Q1

REPORT INFORMATION
  Report Type: 
  Country: None (occurrence: None)
  Receive Date: 20110220
  Receipt Date: 20110210
  Transmission Date: 20110831
  Serious: Yes (Hospitalization)
  Sender: FDA-Public Use
  Company Number: CH-BAYER-2011-012955

PATIENT
  Age: 78 Year
  Sex: Male

DRUGS (5)
  1. NORVASC [Concomitant]
     Dosage: UNK
  2. COAPROVEL [Concomitant]
     Dosage: UNK
  3. PLAVIX [Suspect]
     Dosage: DAILY DOSE 75 MG
     Route: 048
  4. ASPIRIN [Suspect]
     Dosage: DAILY DOSE 100 MG
     Route: 048
     Dates: end: 20101201
  5. TENORMIN [Concomitant]
     Dosage: UNK

REACTIONS (2)
  - ANGIODYSPLASIA [None]
  - ANAEMIA [None]
